FAERS Safety Report 5657395-0 (Version None)
Quarter: 2008Q1

REPORT INFORMATION
  Report Type: 
  Country: None (occurrence: None)
  Receive Date: 20080310
  Receipt Date: 20080304
  Transmission Date: 20080703
  Serious: Yes (Hospitalization, Other)
  Sender: FDA-Public Use
  Company Number: PHNU2008DE01194

PATIENT
  Sex: Male

DRUGS (2)
  1. HALDOL [Suspect]
  2. LEPONEX [Suspect]
     Dosage: 300 MG/DAY
     Route: 048
     Dates: start: 20071101

REACTIONS (5)
  - ANTIPSYCHOTIC DRUG LEVEL INCREASED [None]
  - C-REACTIVE PROTEIN INCREASED [None]
  - DRUG INTERACTION [None]
  - DYSPNOEA [None]
  - PYREXIA [None]
